FAERS Safety Report 21043789 (Version 1)
Quarter: 2022Q3

REPORT INFORMATION
  Report Type: Spontaneous
  Country: US (occurrence: None)
  Receive Date: 20220701
  Receipt Date: 20220701
  Transmission Date: 20221027
  Serious: Yes (unspecified)
  Sender: FDA-Public Use
  Company Number: None

PATIENT
  Age: 68 Year
  Sex: Male
  Weight: 58.95 kg

DRUGS (6)
  1. DICLOFENAC [Suspect]
     Active Substance: DICLOFENAC
     Indication: Costochondritis
     Dosage: FREQUENCY : TWICE A DAY;?
     Route: 048
     Dates: start: 20190901, end: 20220525
  2. PREDNISONE [Concomitant]
     Active Substance: PREDNISONE
  3. COMBIVENT [Concomitant]
     Active Substance: ALBUTEROL SULFATE\IPRATROPIUM BROMIDE
  4. PROAIR HFA [Concomitant]
     Active Substance: ALBUTEROL SULFATE
  5. TRELEGY ELLIPTA [Concomitant]
     Active Substance: FLUTICASONE FUROATE\UMECLIDINIUM BROMIDE\VILANTEROL TRIFENATATE
  6. MUCINEX D [Concomitant]
     Active Substance: GUAIFENESIN\PSEUDOEPHEDRINE HYDROCHLORIDE

REACTIONS (6)
  - Malaise [None]
  - Fatigue [None]
  - Asthenia [None]
  - Productive cough [None]
  - Dyspnoea [None]
  - Eosinophilia [None]

NARRATIVE: CASE EVENT DATE: 20220525
